FAERS Safety Report 15034622 (Version 3)
Quarter: 2018Q2

REPORT INFORMATION
  Report Type: Spontaneous
  Country: FR (occurrence: FR)
  Receive Date: 20180620
  Receipt Date: 20180621
  Transmission Date: 20180711
  Serious: Yes (Life-Threatening)
  Sender: FDA-Public Use
  Company Number: FR-TEVA-2018-FR-907717

PATIENT
  Age: 77 Year
  Sex: Male

DRUGS (17)
  1. FUROSEMIDE. [Suspect]
     Active Substance: FUROSEMIDE
     Indication: CARDIAC FAILURE
     Dosage: 40 MILLIGRAM DAILY;
     Route: 048
     Dates: start: 20180209, end: 20180216
  2. LYRICA [Suspect]
     Active Substance: PREGABALIN
     Indication: DRUG ADMINISTRATION ERROR
     Route: 048
     Dates: start: 20180212, end: 20180212
  3. KARDEGIC [Suspect]
     Active Substance: ASPIRIN DL-LYSINE
     Indication: MYOCARDIAL ISCHAEMIA
     Dosage: 75 MILLIGRAM DAILY; 75 MG, QD, SAUF 18-FEB-2012 + 75MG
     Route: 048
     Dates: start: 20120218
  4. ATENOLOL. [Suspect]
     Active Substance: ATENOLOL
     Indication: DRUG ADMINISTRATION ERROR
     Route: 048
     Dates: start: 20180212, end: 20180212
  5. ATORVASTATIN [Concomitant]
     Active Substance: ATORVASTATIN
     Indication: DYSLIPIDAEMIA
     Dosage: 20 MILLIGRAM DAILY;
     Route: 048
  6. RAMIPRIL. [Suspect]
     Active Substance: RAMIPRIL
     Indication: DRUG ADMINISTRATION ERROR
     Route: 048
     Dates: start: 20180212, end: 20180212
  7. JANUVIA [Suspect]
     Active Substance: SITAGLIPTIN PHOSPHATE
     Indication: TYPE 2 DIABETES MELLITUS
     Dosage: 50 MILLIGRAM DAILY;
     Route: 048
     Dates: start: 20180208
  8. ALLOPURINOL. [Concomitant]
     Active Substance: ALLOPURINOL
     Indication: PRODUCT USED FOR UNKNOWN INDICATION
     Dosage: 100 MILLIGRAM DAILY;
     Route: 048
  9. OXYBUTYNIN. [Suspect]
     Active Substance: OXYBUTYNIN CHLORIDE
     Indication: DRUG ADMINISTRATION ERROR
     Route: 048
     Dates: start: 20180212, end: 20180212
  10. DIFFU-K [Suspect]
     Active Substance: POTASSIUM CHLORIDE
     Route: 065
     Dates: start: 20180212
  11. LOXEN (NICARDIPINE HYDROCHLORIDE) [Suspect]
     Active Substance: NICARDIPINE HYDROCHLORIDE
     Indication: DRUG ADMINISTRATION ERROR
     Route: 048
     Dates: start: 20180212, end: 20180212
  12. BISOCE [Suspect]
     Active Substance: BISOPROLOL
     Indication: MYOCARDIAL ISCHAEMIA
     Dosage: 1.25 MILLIGRAM DAILY;
     Route: 048
     Dates: end: 20180213
  13. NOVORAPID [Suspect]
     Active Substance: INSULIN ASPART
     Indication: DIABETES MELLITUS
     Dosage: AS NEEDED
     Route: 058
     Dates: start: 20180206
  14. ENTRESTO [Concomitant]
     Active Substance: SACUBITRIL\VALSARTAN
     Indication: CARDIAC FAILURE
     Dosage: 2 DOSAGE FORMS DAILY;
     Route: 048
     Dates: end: 20180206
  15. DIFFU-K [Suspect]
     Active Substance: POTASSIUM CHLORIDE
     Indication: HYPOKALAEMIA
     Dosage: 1800 MILLIGRAM DAILY;
     Route: 048
     Dates: start: 20180206, end: 20180212
  16. STILNOX [Concomitant]
     Active Substance: ZOLPIDEM TARTRATE
     Indication: SLEEP DISORDER
     Dosage: 10 MILLIGRAM DAILY;
     Route: 048
     Dates: end: 20180211
  17. METFORMIN [Concomitant]
     Active Substance: METFORMIN HYDROCHLORIDE
     Indication: TYPE 2 DIABETES MELLITUS
     Dosage: 1500 MILLIGRAM DAILY;
     Route: 048

REACTIONS (4)
  - Cardiac output decreased [Not Recovered/Not Resolved]
  - Cardiac failure [Not Recovered/Not Resolved]
  - Cardiovascular insufficiency [Not Recovered/Not Resolved]
  - Confusional state [Recovered/Resolved]

NARRATIVE: CASE EVENT DATE: 20180212
